FAERS Safety Report 5423061-X (Version None)
Quarter: 2007Q3

REPORT INFORMATION
  Report Type: 
  Country: None (occurrence: None)
  Receive Date: 20070821
  Receipt Date: 20070807
  Transmission Date: 20080115
  Serious: Yes (Hospitalization)
  Sender: FDA-Public Use
  Company Number: MEDI-0005765

PATIENT
  Age: 52 Year
  Sex: Male
  Weight: 78.0187 kg

DRUGS (7)
  1. ETHYOL [Suspect]
     Indication: PROPHYLAXIS
     Dosage: 500 MG, 5 IN  5 D, SUBCUTANEOUS
     Route: 058
     Dates: start: 20070417, end: 20070430
  2. ETHYOL [Suspect]
  3. ETHYOL [Suspect]
  4. ETHYOL [Suspect]
  5. FLUOROURACIL [Concomitant]
  6. RADIATION THERAPY [Concomitant]
  7. ZOFRAN [Concomitant]

REACTIONS (13)
  - ANAPHYLACTOID REACTION [None]
  - BACK PAIN [None]
  - CHILLS [None]
  - DERMATITIS EXFOLIATIVE [None]
  - DIARRHOEA [None]
  - HEART RATE INCREASED [None]
  - HYPOTENSION [None]
  - NAUSEA [None]
  - PLATELET COUNT DECREASED [None]
  - PYREXIA [None]
  - TOXIC EPIDERMAL NECROLYSIS [None]
  - VOMITING [None]
  - WHITE BLOOD CELL COUNT DECREASED [None]
